FAERS Safety Report 10159502 (Version 1)
Quarter: 2014Q2

REPORT INFORMATION
  Report Type: Spontaneous
  Country: GB (occurrence: GB)
  Receive Date: 20140508
  Receipt Date: 20140508
  Transmission Date: 20141212
  Serious: Yes (Other)
  Sender: FDA-Public Use
  Company Number: GB-MYLANLABS-2014S1009775

PATIENT
  Sex: Male

DRUGS (5)
  1. ATORVASTATIN [Suspect]
  2. BISOPROLOL [Suspect]
  3. CLOPIDOGREL [Suspect]
  4. ASPIRIN [Suspect]
  5. RAMIPRIL [Concomitant]

REACTIONS (2)
  - Toothache [Unknown]
  - Sensitivity of teeth [Unknown]
